FAERS Safety Report 8533494-0 (Version None)
Quarter: 2012Q3

REPORT INFORMATION
  Report Type: 
  Country: None (occurrence: None)
  Receive Date: 20120724
  Receipt Date: 20120713
  Transmission Date: 20120928
  Serious: Yes (Hospitalization)
  Sender: FDA-Public Use
  Company Number: US-ELI_LILLY_AND_COMPANY-US201207004331

PATIENT
  Sex: Male

DRUGS (2)
  1. ALIMTA [Suspect]
     Dosage: 1000 MG, EVERY 2 WEEKS
  2. ALIMTA [Suspect]
     Indication: NON-SMALL CELL LUNG CANCER STAGE IV
     Dosage: 950 MG, EVERY 2 WEEKS
     Route: 042
     Dates: start: 20120110

REACTIONS (4)
  - ASTHENIA [None]
  - DECREASED APPETITE [None]
  - RESPIRATORY FAILURE [None]
  - RESPIRATORY DISTRESS [None]
